FAERS Safety Report 7283052-3 (Version None)
Quarter: 2011Q1

REPORT INFORMATION
  Report Type: 
  Country: None (occurrence: None)
  Receive Date: 20110209
  Receipt Date: 20110207
  Transmission Date: 20110831
  Serious: Yes (Hospitalization)
  Sender: FDA-Public Use
  Company Number: DE-SANOFI-AVENTIS-2011SA007497

PATIENT
  Age: 46 Year
  Sex: Female
  Weight: 83.8 kg

DRUGS (13)
  1. CYCLOPHOSPHAMIDE [Suspect]
     Indication: BREAST CANCER
     Route: 041
     Dates: start: 20110107, end: 20110107
  2. DEXAMETHASONE [Concomitant]
     Route: 042
     Dates: start: 20110107, end: 20110107
  3. DEXAMETHASONE [Concomitant]
     Route: 048
     Dates: start: 20110107, end: 20110107
  4. DEXAMETHASONE [Concomitant]
     Route: 048
     Dates: start: 20110109, end: 20110109
  5. DOCETAXEL [Suspect]
     Route: 041
  6. DEXAMETHASONE [Concomitant]
     Indication: PROPHYLAXIS
     Route: 048
     Dates: start: 20110106, end: 20110106
  7. ONDANSETRON [Concomitant]
     Indication: PROPHYLAXIS
     Route: 048
     Dates: start: 20110107, end: 20110107
  8. PANTOZOL [Concomitant]
     Indication: PROPHYLAXIS
     Route: 048
     Dates: start: 20110106, end: 20110110
  9. UROMITEXAN [Concomitant]
     Indication: PROPHYLAXIS
     Route: 042
     Dates: start: 20110107, end: 20110107
  10. DEXAMETHASONE [Concomitant]
     Route: 048
     Dates: start: 20110108, end: 20110108
  11. UROMITEXAN [Concomitant]
     Route: 048
     Dates: start: 20110107, end: 20110107
  12. DOCETAXEL [Suspect]
     Indication: BREAST CANCER
     Route: 041
     Dates: start: 20110107, end: 20110107
  13. METOCLOPRAMIDE [Concomitant]
     Indication: PROPHYLAXIS
     Route: 048
     Dates: start: 20110108, end: 20110110

REACTIONS (1)
  - DEVICE OCCLUSION [None]
